FAERS Safety Report 10874766 (Version 2)
Quarter: 2015Q2

REPORT INFORMATION
  Report Type: Report from Study
  Country: US (occurrence: US)
  Receive Date: 20150227
  Receipt Date: 20150408
  Transmission Date: 20150821
  Serious: Yes (Hospitalization, Other)
  Sender: FDA-Public Use
  Company Number: US-PFIZER INC-2014252400

PATIENT
  Age: 64 Year
  Sex: Male
  Weight: 95 kg

DRUGS (3)
  1. PALBOCICLIB [Suspect]
     Active Substance: PALBOCICLIB
     Indication: MALIGNANT MELANOMA
     Dosage: 100 MG, CYCLIC (21-DAYS ON / 7-DAYS OFF)
     Route: 048
     Dates: start: 20140716, end: 20140902
  2. TRAMETINIB [Suspect]
     Active Substance: TRAMETINIB
     Dosage: 1 MG, 1X/DAY
     Route: 048
     Dates: start: 20140807, end: 20140903
  3. TRAMETINIB [Suspect]
     Active Substance: TRAMETINIB
     Indication: MALIGNANT MELANOMA
     Dosage: 1.5 MG, DAILY
     Route: 048
     Dates: start: 20140716, end: 2014

REACTIONS (8)
  - Small intestinal obstruction [Recovered/Resolved]
  - Blood creatine phosphokinase MB increased [Recovered/Resolved]
  - Lipase increased [Not Recovered/Not Resolved]
  - Vomiting [Recovered/Resolved]
  - Pneumonia [Recovered/Resolved]
  - Blood creatine phosphokinase increased [Recovered/Resolved]
  - Amylase increased [Not Recovered/Not Resolved]
  - Diarrhoea [Recovered/Resolved]

NARRATIVE: CASE EVENT DATE: 20140821
